FAERS Safety Report 9453354 (Version 1)
Quarter: 2013Q3

REPORT INFORMATION
  Report Type: Report from Study
  Country: CA (occurrence: CA)
  Receive Date: 20130812
  Receipt Date: 20130812
  Transmission Date: 20140515
  Serious: Yes (Other)
  Sender: FDA-Public Use
  Company Number: CA-ABBOTT-13P-028-1130750-00

PATIENT
  Sex: Female
  Weight: 65.83 kg

DRUGS (2)
  1. HUMIRA [Suspect]
     Indication: CROHN^S DISEASE
     Route: 058
     Dates: start: 20070302
  2. ENTOCORT [Concomitant]
     Indication: CROHN^S DISEASE
     Route: 048
     Dates: start: 200406

REACTIONS (5)
  - Abdominal adhesions [Unknown]
  - Dental caries [Recovered/Resolved]
  - Gingivitis [Recovered/Resolved]
  - Intestinal stenosis [Recovered/Resolved]
  - Abdominal adhesions [Recovered/Resolved]
